FAERS Safety Report 5070881-X (Version None)
Quarter: 2006Q3

REPORT INFORMATION
  Report Type: 
  Country: None (occurrence: None)
  Receive Date: 20060804
  Receipt Date: 20060725
  Transmission Date: 20061208
  Serious: Yes (Disabling)
  Sender: FDA-Public Use
  Company Number: PHRM2006FR02195

PATIENT
  Age: 76 Year
  Sex: Female

DRUGS (1)
  1. LESCOL [Suspect]
     Dosage: 20 MG, QD
     Route: 048
     Dates: start: 20060601

REACTIONS (5)
  - FEAR OF FALLING [None]
  - GAIT DISTURBANCE [None]
  - HYPOAESTHESIA [None]
  - PARAESTHESIA [None]
  - SCIATICA [None]
